FAERS Safety Report 6550844-5 (Version None)
Quarter: 2010Q1

REPORT INFORMATION
  Report Type: 
  Country: None (occurrence: None)
  Receive Date: 20100125
  Receipt Date: 20100118
  Transmission Date: 20100710
  Serious: Yes (Other)
  Sender: FDA-Public Use
  Company Number: US-JNJCH-2010001660

PATIENT
  Sex: Male

DRUGS (1)
  1. ROLAIDS EXTRA STRENGTH FRESHMINT [Suspect]
     Indication: DRUG USE FOR UNKNOWN INDICATION
     Dosage: TEXT:UNSPECIFIED
     Route: 065

REACTIONS (5)
  - ABDOMINAL PAIN UPPER [None]
  - BOWEL MOVEMENT IRREGULARITY [None]
  - DISCOMFORT [None]
  - LOSS OF EMPLOYMENT [None]
  - RECTAL HAEMORRHAGE [None]
